FAERS Safety Report 6887453-4 (Version None)
Quarter: 2010Q3

REPORT INFORMATION
  Report Type: 
  Country: None (occurrence: None)
  Receive Date: 20100708
  Receipt Date: 20091207
  Transmission Date: 20110219
  Serious: Yes (Other)
  Sender: FDA-Public Use
  Company Number: 2009307888

PATIENT
  Age: 45 Year
  Sex: Female
  Weight: 122 kg

DRUGS (6)
  1. CHANTIX [Suspect]
     Indication: SMOKING CESSATION THERAPY
     Dosage: ORAL
     Route: 048
     Dates: start: 20091019
  2. SYNTHROID [Concomitant]
  3. ALLEGRA-D 12 HOUR [Concomitant]
  4. MONTELUKAST SODIUM [Concomitant]
  5. ADVAIR DISKUS (FLUTICASONE PROPIONATE, SALMETEROL XINAFOATE) [Concomitant]
  6. PRO-AIR (PROCATEROL HYDROCHLORIDE) [Concomitant]

REACTIONS (1)
  - DYSPNOEA [None]
